FAERS Safety Report 16690776 (Version 1)
Quarter: 2019Q3

REPORT INFORMATION
  Report Type: Spontaneous
  Country: US (occurrence: US)
  Receive Date: 20190811
  Receipt Date: 20190811
  Transmission Date: 20191004
  Serious: Yes (Hospitalization, Other)
  Sender: FDA-Public Use
  Company Number: US-009507513-1908USA003084

PATIENT
  Age: 68 Year
  Sex: Female
  Weight: 52.6 kg

DRUGS (5)
  1. TOLVAPTAN [Suspect]
     Active Substance: TOLVAPTAN
     Indication: CONGENITAL CYSTIC KIDNEY DISEASE
     Dosage: 60 MILLIGRAM, QD
     Route: 048
     Dates: start: 20180625, end: 20181130
  2. CENTRUM SILVER [Concomitant]
     Active Substance: MINERALS\VITAMINS
     Dosage: UNK
  3. CLARITIN [Concomitant]
     Active Substance: LORATADINE
     Dosage: UNK
  4. COZAAR [Suspect]
     Active Substance: LOSARTAN POTASSIUM
     Indication: PRODUCT USED FOR UNKNOWN INDICATION
     Dosage: 50 MILLIGRAM
  5. COZAAR [Suspect]
     Active Substance: LOSARTAN POTASSIUM
     Dosage: 25 MILLIGRAM, QD
     Route: 048

REACTIONS (8)
  - Acute kidney injury [Unknown]
  - Helicobacter infection [Unknown]
  - Drug-induced liver injury [Recovering/Resolving]
  - Lipase increased [Unknown]
  - Taste disorder [Unknown]
  - Hypotension [Unknown]
  - Amylase increased [Unknown]
  - Depression [Unknown]

NARRATIVE: CASE EVENT DATE: 20181129
